FAERS Safety Report 15247493 (Version 5)
Quarter: 2018Q4

REPORT INFORMATION
  Report Type: Spontaneous
  Country: US (occurrence: US)
  Receive Date: 20180807
  Receipt Date: 20181206
  Transmission Date: 20190204
  Serious: No
  Sender: FDA-Public Use
  Company Number: US-ALEXION PHARMACEUTICALS INC.-A201809627

PATIENT
  Sex: Male

DRUGS (2)
  1. HUMIRA [Concomitant]
     Active Substance: ADALIMUMAB
     Indication: INFLAMMATORY BOWEL DISEASE
     Dosage: UNK
     Route: 065
  2. STRENSIQ [Suspect]
     Active Substance: ASFOTASE ALFA
     Indication: HYPOPHOSPHATASIA
     Dosage: UNK, SIX TIMES/WEEK
     Route: 065
     Dates: start: 20180721

REACTIONS (12)
  - Pain [Unknown]
  - Malaise [Unknown]
  - Injection site reaction [Unknown]
  - Injection site atrophy [Unknown]
  - Burning sensation [Not Recovered/Not Resolved]
  - Drug effect delayed [Unknown]
  - Myalgia [Unknown]
  - Drug ineffective [Unknown]
  - Fatigue [Unknown]
  - Arthralgia [Unknown]
  - Bone pain [Unknown]
  - Injection site pain [Unknown]

NARRATIVE: CASE EVENT DATE: 20180721
